FAERS Safety Report 9202621 (Version 1)
Quarter: 2013Q2

REPORT INFORMATION
  Report Type: Spontaneous
  Country: NL (occurrence: NL)
  Receive Date: 20130401
  Receipt Date: 20130401
  Transmission Date: 20140414
  Serious: Yes (Hospitalization, Other)
  Sender: FDA-Public Use
  Company Number: NL-ACTAVIS-2013-05144

PATIENT
  Age: 81 Year
  Sex: Female

DRUGS (1)
  1. NITROFURANTOIN [Suspect]
     Indication: URINARY TRACT INFECTION
     Dosage: 200 MG, UNKNOWN FREQUENCY; 2 DOSES
     Route: 065

REACTIONS (14)
  - Pulmonary toxicity [Recovered/Resolved]
  - Dyspnoea [Recovered/Resolved]
  - Painful respiration [Recovered/Resolved]
  - Oxygen saturation decreased [Recovered/Resolved]
  - Rales [Recovered/Resolved]
  - Type III immune complex mediated reaction [Recovered/Resolved]
  - Pyrexia [Recovered/Resolved]
  - Leukocytosis [Recovered/Resolved]
  - C-reactive protein increased [Recovered/Resolved]
  - Sinus tachycardia [Recovered/Resolved]
  - Eosinophilia [Recovered/Resolved]
  - Urinary tract infection [None]
  - Respiratory tract infection [None]
  - Blood pressure systolic increased [None]
